FAERS Safety Report 9618602 (Version 2)
Quarter: 2013Q4

REPORT INFORMATION
  Report Type: Spontaneous
  Country: US (occurrence: US)
  Receive Date: 20131014
  Receipt Date: 20131024
  Transmission Date: 20140711
  Serious: No
  Sender: FDA-Public Use
  Company Number: US-PFIZER INC-2013292910

PATIENT
  Age: 45 Year
  Sex: Female
  Weight: 73 kg

DRUGS (3)
  1. CHANTIX [Suspect]
     Indication: SMOKING CESSATION THERAPY
     Dosage: 0.5 MG, 1X/DAY
     Route: 048
     Dates: start: 2011, end: 2011
  2. CHANTIX [Suspect]
     Dosage: UNK
     Route: 048
     Dates: start: 2011, end: 2011
  3. SYNTHROID [Concomitant]
     Indication: THYROID DISORDER
     Dosage: UNK

REACTIONS (1)
  - Abnormal dreams [Unknown]
